FAERS Safety Report 7367190-2 (Version None)
Quarter: 2011Q1

REPORT INFORMATION
  Report Type: 
  Country: None (occurrence: None)
  Receive Date: 20110311
  Receipt Date: 20110301
  Transmission Date: 20110831
  Serious: Yes (Other)
  Sender: FDA-Public Use
  Company Number: 842452

PATIENT
  Age: 55 Year
  Sex: Female
  Weight: 65 kg

DRUGS (2)
  1. MORPHINE SULFATE [Suspect]
     Indication: PAIN
     Dosage: (4MG, ONCE, INTRAVENOUS, NOT OTHERWISE SPECIFIED) (4 MG, ONCE, INTRAVENOUS (NOT OTHERWISE SPECIFIED)
     Route: 042
     Dates: start: 20110301, end: 20110301
  2. MORPHINE SULFATE [Suspect]
     Indication: PAIN
     Dosage: (4MG, ONCE, INTRAVENOUS, NOT OTHERWISE SPECIFIED) (4 MG, ONCE, INTRAVENOUS (NOT OTHERWISE SPECIFIED)
     Route: 042
     Dates: start: 20110301, end: 20110301

REACTIONS (1)
  - INFUSION SITE URTICARIA [None]
